FAERS Safety Report 9337197 (Version 3)
Quarter: 2013Q3

REPORT INFORMATION
  Report Type: Spontaneous
  Country: BR (occurrence: BR)
  Receive Date: 20130607
  Receipt Date: 20130715
  Transmission Date: 20140515
  Serious: Yes (Death, Hospitalization, Other)
  Sender: FDA-Public Use
  Company Number: BR-PFIZER INC-2013124821

PATIENT
  Age: 45 Year
  Sex: Male
  Weight: 71 kg

DRUGS (7)
  1. SUTENT [Suspect]
     Indication: RENAL CELL CARCINOMA
     Dosage: 50 MG, CYCLIC (4X2), ONE TABLET ONCE DAILY
     Route: 048
     Dates: start: 20130410
  2. SUTENT [Suspect]
     Dosage: 37.5 MG, CYCLIC, (4X2)
     Route: 048
     Dates: start: 20130410
  3. MORPHINE [Suspect]
     Indication: PAIN
     Dosage: UNK
  4. CODEX [Concomitant]
     Dosage: UNK, EVERY 6 HOURS (4X/DAY)
  5. RANITIDINE [Concomitant]
     Dosage: UNK
  6. FOLIC ACID [Concomitant]
     Dosage: ONE TABLET AFTER LUNCH
  7. DIMORF [Concomitant]
     Dosage: UNK

REACTIONS (17)
  - Death [Fatal]
  - Pain [Unknown]
  - Pneumonia [Not Recovered/Not Resolved]
  - General physical condition abnormal [Unknown]
  - Pyrexia [Not Recovered/Not Resolved]
  - Musculoskeletal chest pain [Not Recovered/Not Resolved]
  - Feeling abnormal [Unknown]
  - Dysphonia [Unknown]
  - Constipation [Not Recovered/Not Resolved]
  - Somnolence [Unknown]
  - Fatigue [Unknown]
  - Nodule [Unknown]
  - Oral pain [Unknown]
  - Yellow skin [Unknown]
  - Mouth ulceration [Unknown]
  - Gingival ulceration [Unknown]
  - Hypophagia [Unknown]
